FAERS Safety Report 6700333-X (Version None)
Quarter: 2010Q2

REPORT INFORMATION
  Report Type: 
  Country: None (occurrence: None)
  Receive Date: 20100428
  Receipt Date: 20100419
  Transmission Date: 20101027
  Serious: Yes (Hospitalization)
  Sender: FDA-Public Use
  Company Number: US-BAXTER-2010BH009283

PATIENT
  Age: 37 Year
  Sex: Female

DRUGS (3)
  1. DIANEAL [Suspect]
     Indication: PERITONEAL DIALYSIS
     Route: 033
     Dates: start: 20080521
  2. ANTI DEPRESSANT [Concomitant]
     Indication: DRUG USE FOR UNKNOWN INDICATION
     Route: 065
  3. DILANTIN [Concomitant]
     Indication: CONVULSION
     Route: 065

REACTIONS (3)
  - NAUSEA [None]
  - PERITONEAL DIALYSIS COMPLICATION [None]
  - PERITONITIS BACTERIAL [None]
